FAERS Safety Report 9849064 (Version 1)
Quarter: 2014Q1

REPORT INFORMATION
  Report Type: Spontaneous
  Country: GB (occurrence: None)
  Receive Date: 20140124
  Receipt Date: 20140124
  Transmission Date: 20141002
  Serious: Yes (Life-Threatening, Disabling, Other)
  Sender: FDA-Public Use
  Company Number: AUR-APL-2014-00523

PATIENT
  Age: 66 Year
  Sex: Male
  Weight: 200 kg

DRUGS (2)
  1. SIMVASTATIN [Suspect]
     Indication: GLUCOSE TOLERANCE IMPAIRED
     Dosage: 1 IN 1 D
     Route: 048
     Dates: start: 20131116, end: 20131123
  2. SIMVASTATIN [Suspect]
     Indication: HYPERCHOLESTEROLAEMIA
     Dosage: 1 IN 1 D
     Route: 048
     Dates: start: 20131116, end: 20131123

REACTIONS (5)
  - Headache [None]
  - Nausea [None]
  - Vomiting [None]
  - Aphagia [None]
  - Constipation [None]
